FAERS Safety Report 8334463-6 (Version None)
Quarter: 2012Q2

REPORT INFORMATION
  Report Type: 
  Country: None (occurrence: None)
  Receive Date: 20120503
  Receipt Date: 20120426
  Transmission Date: 20120825
  Serious: Yes (Hospitalization, Other)
  Sender: FDA-Public Use
  Company Number: PHHY2012ZA037159

PATIENT
  Sex: Female

DRUGS (6)
  1. ATORVASTATIN CALCIUM [Concomitant]
     Indication: HYPERCHOLESTEROLAEMIA
     Dosage: 20 MG, UNK
     Dates: start: 20060101
  2. OMEPRAZOLE [Concomitant]
     Indication: HIATUS HERNIA
     Dosage: UNK UKN, UNK
     Dates: start: 20110801
  3. LASIX [Concomitant]
     Dosage: 20 MG, UNK
     Dates: start: 20110801
  4. SLOW-K [Concomitant]
     Dosage: 600 MG, UNK
     Dates: start: 20110801
  5. METICORTEN [Concomitant]
     Indication: ALVEOLITIS ALLERGIC
     Dosage: 3 DF, DAILY
  6. VALSARTAN [Suspect]
     Indication: HYPERTENSION
     Dosage: 80 MG, UNK
     Dates: start: 20110801

REACTIONS (1)
  - THORACIC VERTEBRAL FRACTURE [None]
